FAERS Safety Report 12071305 (Version 1)
Quarter: 2016Q1

REPORT INFORMATION
  Report Type: Spontaneous
  Country: US (occurrence: US)
  Receive Date: 20160211
  Receipt Date: 20160211
  Transmission Date: 20160526
  Serious: No
  Sender: FDA-Public Use
  Company Number: US-009507513-1601USA011834

PATIENT
  Age: 43 Year
  Sex: Female

DRUGS (3)
  1. GANIRELIX ACETATE INJECTION [Suspect]
     Active Substance: GANIRELIX ACETATE
     Indication: ASSISTED FERTILISATION
     Dosage: 250 MICROGRAM, QD
     Route: 058
     Dates: start: 20160112, end: 20160114
  2. BRAVELLE [Concomitant]
     Active Substance: FOLLITROPIN\UROFOLLITROPIN
  3. MENOPUR [Concomitant]
     Active Substance: FOLLICLE STIMULATING HORMONE BETA POLYPEPTIDE\LUTROPIN ALFA

REACTIONS (1)
  - Premature ovulation [Recovered/Resolved]

NARRATIVE: CASE EVENT DATE: 20160115
